FAERS Safety Report 20145794 (Version 1)
Quarter: 2021Q4

REPORT INFORMATION
  Report Type: Spontaneous
  Country: US (occurrence: None)
  Receive Date: 20211203
  Receipt Date: 20211203
  Transmission Date: 20220303
  Serious: Yes (Death)
  Sender: FDA-Public Use
  Company Number: None

PATIENT
  Age: 77 Year
  Sex: Male
  Weight: 55.34 kg

DRUGS (1)
  1. VOTRIENT [Suspect]
     Active Substance: PAZOPANIB HYDROCHLORIDE
     Indication: Renal cancer
     Dosage: OTHER QUANTITY : TAKE 3 TALETS;?OTHER FREQUENCY : D 1H BEFORE OR 2H ;?
     Route: 048
     Dates: start: 202107

REACTIONS (1)
  - Death [None]
